FAERS Safety Report 24016281 (Version 1)
Quarter: 2024Q2

REPORT INFORMATION
  Report Type: Spontaneous
  Country: US (occurrence: US)
  Receive Date: 20240626
  Receipt Date: 20240626
  Transmission Date: 20240715
  Serious: No
  Sender: FDA-Public Use
  Company Number: US-SA-SAC20240620000212

PATIENT
  Age: 3 Year
  Sex: Male

DRUGS (2)
  1. DUPIXENT [Suspect]
     Active Substance: DUPILUMAB
     Indication: Eczema
     Dosage: DOSE -300 MG FREQUENCY-:EVERY 4 WEEKS
     Route: 058
     Dates: start: 20230818
  2. CORTISONE [Concomitant]
     Active Substance: CORTISONE
     Dosage: AS NEEDED

REACTIONS (3)
  - Rash [Unknown]
  - Pruritus [Unknown]
  - Therapeutic response shortened [Unknown]
